FAERS Safety Report 12411257 (Version 2)
Quarter: 2016Q2

REPORT INFORMATION
  Report Type: Report from Study
  Country: ES (occurrence: ES)
  Receive Date: 20160527
  Receipt Date: 20160629
  Transmission Date: 20160815
  Serious: Yes (Death, Life-Threatening, Hospitalization)
  Sender: FDA-Public Use
  Company Number: ES-ROCHE-1699558

PATIENT
  Age: 61 Year
  Sex: Female
  Weight: 61 kg

DRUGS (14)
  1. VITAMIN K [Concomitant]
     Active Substance: PHYTONADIONE
     Dosage: INDICATION: PROPHYLAXIS HAEMORRAGE
     Route: 065
     Dates: start: 20160122, end: 20160123
  2. KETAZOLAM [Concomitant]
     Active Substance: KETAZOLAM
     Dosage: INDICATION: PROPHYLAXIS INSOMNIA
     Route: 065
     Dates: start: 20160122, end: 20160123
  3. BEVACIZUMAB [Suspect]
     Active Substance: BEVACIZUMAB
     Indication: NON-SMALL CELL LUNG CANCER
     Dosage: MOST RECENT DOSE: 14/JAN/2016
     Route: 042
     Dates: start: 20160114, end: 20160114
  4. CARBOPLATIN. [Suspect]
     Active Substance: CARBOPLATIN
     Indication: NON-SMALL CELL LUNG CANCER
     Dosage: MOST RECENT DOSE: 14/JAN/2016
     Route: 042
     Dates: start: 20160114, end: 20160114
  5. CODEINE [Concomitant]
     Active Substance: CODEINE
     Indication: COUGH
     Route: 065
     Dates: start: 20160105, end: 20160123
  6. ATEZOLIZUMAB [Suspect]
     Active Substance: ATEZOLIZUMAB
     Indication: NON-SMALL CELL LUNG CANCER
     Dosage: MOST RECENT DOSE: 14/JAN/2016
     Route: 042
     Dates: start: 20160114, end: 20160114
  7. OMEPRAZOL [Concomitant]
     Active Substance: OMEPRAZOLE
     Indication: PROPHYLAXIS
     Route: 065
     Dates: start: 20160122, end: 20160126
  8. ESCITALOPRAM [Concomitant]
     Active Substance: ESCITALOPRAM OXALATE
     Indication: DEPRESSION
     Route: 065
     Dates: end: 20160122
  9. ENOXAPARINE SODIQUE [Concomitant]
     Active Substance: ENOXAPARIN SODIUM
     Dosage: INDICATION: TROMBOEMBOLIC PROPHYLAXIS
     Route: 065
     Dates: start: 20160122, end: 20160122
  10. RISPERIDONA [Concomitant]
     Active Substance: RISPERIDONE
     Dosage: INDICATION: AGITATION  PROHYLAXIS
     Route: 065
     Dates: start: 20160124, end: 20160124
  11. BROMAZEPAM [Concomitant]
     Active Substance: BROMAZEPAM
     Dosage: INDICATION: PROPHYLAXIS INSOMNIA
     Route: 065
     Dates: start: 20160122, end: 20160123
  12. PACLITAXEL. [Suspect]
     Active Substance: PACLITAXEL
     Indication: NON-SMALL CELL LUNG CANCER
     Dosage: MOST RECENT DOSE: 14/JAN/2016
     Route: 042
     Dates: start: 20160114, end: 20160114
  13. CODEINE [Concomitant]
     Active Substance: CODEINE
     Route: 065
     Dates: start: 20160122, end: 20160123
  14. SEDOTIME [Concomitant]
     Indication: DEPRESSION
     Route: 065
     Dates: end: 20160122

REACTIONS (2)
  - Infectious pleural effusion [Not Recovered/Not Resolved]
  - Haemoptysis [Fatal]

NARRATIVE: CASE EVENT DATE: 20160121
